FAERS Safety Report 17407136 (Version 2)
Quarter: 2020Q1

REPORT INFORMATION
  Report Type: Spontaneous
  Country: RO (occurrence: RO)
  Receive Date: 20200212
  Receipt Date: 20200303
  Transmission Date: 20200409
  Serious: Yes (Hospitalization, Other)
  Sender: FDA-Public Use
  Company Number: RO-009507513-2002ROM001905

PATIENT
  Age: 41 Year
  Sex: Female

DRUGS (6)
  1. PEMETREXED DISODIUM [Suspect]
     Active Substance: PEMETREXED DISODIUM
     Indication: NON-SMALL CELL LUNG CANCER METASTATIC
     Dosage: FIRST 4 CURES
  2. PEMBROLIZUMAB. [Suspect]
     Active Substance: PEMBROLIZUMAB
     Indication: NON-SMALL CELL LUNG CANCER METASTATIC
     Dosage: FIRST 4 CURES
  3. PEMBROLIZUMAB. [Suspect]
     Active Substance: PEMBROLIZUMAB
     Indication: LUNG ADENOCARCINOMA
  4. PLATINUM [Suspect]
     Active Substance: PLATINUM
     Indication: LUNG ADENOCARCINOMA
  5. PEMETREXED DISODIUM [Suspect]
     Active Substance: PEMETREXED DISODIUM
     Indication: LUNG ADENOCARCINOMA
  6. PLATINUM [Suspect]
     Active Substance: PLATINUM
     Indication: NON-SMALL CELL LUNG CANCER METASTATIC
     Dosage: FIRST 4 CURES

REACTIONS (5)
  - Dyspnoea [Unknown]
  - General physical health deterioration [Recovering/Resolving]
  - Immune-mediated pneumonitis [Unknown]
  - Fatigue [Unknown]
  - Respiratory failure [Unknown]

NARRATIVE: CASE EVENT DATE: 2020
